FAERS Safety Report 8206211-1 (Version None)
Quarter: 2012Q1

REPORT INFORMATION
  Report Type: 
  Country: None (occurrence: None)
  Receive Date: 20120313
  Receipt Date: 20120305
  Transmission Date: 20120608
  Serious: Yes (Other)
  Sender: FDA-Public Use
  Company Number: PHHY2012BE019339

PATIENT
  Age: 65 Year
  Sex: Female

DRUGS (8)
  1. FLUOROURACIL [Concomitant]
     Dosage: UNK UKN, UNK
  2. EPIRUBICIN [Concomitant]
     Dosage: UNK UKN, UNK
  3. AREDIA [Suspect]
     Indication: METASTASES TO BONE
     Dosage: 60 MG, QMO
  4. AVASTIN [Concomitant]
     Dosage: UNK UKN, UNK
  5. TAXOTERE [Concomitant]
     Dosage: UNK UKN, UNK
  6. NAVELBINE [Concomitant]
     Dosage: UNK UKN, UNK
  7. ZOMETA [Suspect]
     Indication: METASTASES TO BONE
     Dosage: 4 MG,
  8. CYCLOPHOSPHAMIDE [Concomitant]
     Dosage: UNK UKN, UNK

REACTIONS (3)
  - OSTEONECROSIS OF JAW [None]
  - PAIN IN JAW [None]
  - ABSCESS JAW [None]
